FAERS Safety Report 8097242-3 (Version None)
Quarter: 2012Q1

REPORT INFORMATION
  Report Type: 
  Country: None (occurrence: None)
  Receive Date: 20120128
  Receipt Date: 20110812
  Transmission Date: 20120608
  Serious: Yes (Hospitalization, Other)
  Sender: FDA-Public Use
  Company Number: US-ABBOTT-11P-163-0730736-00

PATIENT
  Sex: Female
  Weight: 72.186 kg

DRUGS (9)
  1. HUMIRA [Suspect]
     Indication: RHEUMATOID ARTHRITIS
     Dates: start: 20110221
  2. OPTICLEANSE [Concomitant]
     Indication: PRODUCT USED FOR UNKNOWN INDICATION
  3. DIGESTIN [Concomitant]
     Indication: PRODUCT USED FOR UNKNOWN INDICATION
  4. CORTISOL CONTROL [Concomitant]
     Indication: SUPPLEMENTATION THERAPY
  5. BIOINFLAMMATORY SUPPLEMENT [Concomitant]
     Indication: PRODUCT USED FOR UNKNOWN INDICATION
  6. ARGENTYN 23 [Concomitant]
     Indication: PRODUCT USED FOR UNKNOWN INDICATION
  7. VIRAL GTTS [Concomitant]
     Indication: PRODUCT USED FOR UNKNOWN INDICATION
  8. PROBIOTICS [Concomitant]
     Indication: PRODUCT USED FOR UNKNOWN INDICATION
     Route: 048
  9. VITAMIN B-12 [Concomitant]
     Indication: PRODUCT USED FOR UNKNOWN INDICATION
     Route: 048

REACTIONS (6)
  - PHOTOSENSITIVITY REACTION [None]
  - MIGRAINE [None]
  - DIVERTICULITIS [None]
  - HEADACHE [None]
  - NAUSEA [None]
  - VOMITING [None]
